FAERS Safety Report 6738889-3 (Version None)
Quarter: 2010Q2

REPORT INFORMATION
  Report Type: 
  Country: None (occurrence: None)
  Receive Date: 20100521
  Receipt Date: 20100505
  Transmission Date: 20101027
  Serious: Yes (Other)
  Sender: FDA-Public Use
  Company Number: FKO2010001182

PATIENT
  Age: 44 Year
  Sex: Male

DRUGS (3)
  1. CISPLATIN [Suspect]
     Indication: RETROPERITONEAL CANCER
  2. DACARBAZINE (MANUFACTURER UNKNOWN) (DACARBAZINE) [Suspect]
     Indication: RETROPERITONEAL CANCER
  3. ADRIADRIAMYCIN (DOXORUBICIN HYDROCHLORIDE) [Concomitant]

REACTIONS (6)
  - CHEST DISCOMFORT [None]
  - DYSPNOEA [None]
  - PALPITATIONS [None]
  - RENAL FAILURE ACUTE [None]
  - SOMNOLENCE [None]
  - TUMOUR LYSIS SYNDROME [None]
